FAERS Safety Report 13012153 (Version 1)
Quarter: 2016Q4

REPORT INFORMATION
  Report Type: Spontaneous
  Country: FR (occurrence: FR)
  Receive Date: 20161209
  Receipt Date: 20161209
  Transmission Date: 20170207
  Serious: Yes (Death)
  Sender: FDA-Public Use
  Company Number: PHHY2016FR169408

PATIENT
  Age: 63 Year
  Sex: Male

DRUGS (3)
  1. PAROXETINE HYDROCHLORIDE. [Concomitant]
     Active Substance: PAROXETINE HYDROCHLORIDE
     Indication: DEPRESSION
     Dosage: UNK UNK, QD
     Route: 048
     Dates: start: 2003
  2. ONBREZ BREEZHALER [Suspect]
     Active Substance: INDACATEROL
     Indication: CHRONIC OBSTRUCTIVE PULMONARY DISEASE
     Dosage: 30 UG, QD
     Route: 055
     Dates: start: 201404
  3. LEXOMIL [Concomitant]
     Active Substance: BROMAZEPAM
     Indication: ANXIETY
     Dosage: 1/2 DF IN THE MORNING, 1/4 DF AT NOON AND 1/4 DF IN THE EVENING
     Route: 048
     Dates: start: 2003

REACTIONS (6)
  - Hypotension [Unknown]
  - Choking [Fatal]
  - Snoring [Unknown]
  - Respiratory distress [Fatal]
  - Foreign body aspiration [Fatal]
  - Dyspnoea [Unknown]
